FAERS Safety Report 4388391-1 (Version None)
Quarter: 2004Q3

REPORT INFORMATION
  Report Type: 
  Country: None (occurrence: None)
  Receive Date: 20040701
  Receipt Date: 20040607
  Transmission Date: 20050211
  Serious: Yes (Other)
  Sender: FDA-Public Use
  Company Number: US-AMGEN-US079508

PATIENT
  Sex: Male

DRUGS (7)
  1. KINERET [Suspect]
     Indication: RHEUMATOID ARTHRITIS
     Route: 058
     Dates: start: 20021019
  2. ACCUPRIL [Concomitant]
  3. LENTE INSULIN [Concomitant]
  4. HUMALOG [Concomitant]
  5. ALEVE [Concomitant]
  6. REGLAN [Concomitant]
  7. DARVOCET-N 100 [Concomitant]

REACTIONS (2)
  - BASAL CELL CARCINOMA [None]
  - CONDITION AGGRAVATED [None]
